FAERS Safety Report 22121092 (Version 1)
Quarter: 2023Q1

REPORT INFORMATION
  Report Type: Spontaneous
  Country: DE (occurrence: DE)
  Receive Date: 20230321
  Receipt Date: 20230321
  Transmission Date: 20230417
  Serious: Yes (Hospitalization, Other)
  Sender: FDA-Public Use
  Company Number: None

PATIENT
  Age: 40 Year
  Sex: Male
  Weight: 85 kg

DRUGS (1)
  1. PAXLOVID [Suspect]
     Active Substance: NIRMATRELVIR\RITONAVIR
     Indication: COVID-19 treatment
     Dosage: [PF-07321332 300 MG]/[RITONAVIR 100 MG], ONE-TIME AND FIRST-TIME USE
     Route: 048
     Dates: start: 20230218

REACTIONS (9)
  - Hypersensitivity [Recovering/Resolving]
  - Hemiparesis [Recovering/Resolving]
  - Facial paresis [Recovering/Resolving]
  - Anxiety [Recovering/Resolving]
  - Dyspnoea [Recovering/Resolving]
  - Somnolence [Recovering/Resolving]
  - Dysgeusia [Recovering/Resolving]
  - Panic reaction [Recovering/Resolving]
  - Drug intolerance [Recovering/Resolving]

NARRATIVE: CASE EVENT DATE: 20230218
